FAERS Safety Report 12906265 (Version 1)
Quarter: 2016Q4

REPORT INFORMATION
  Report Type: Spontaneous
  Country: US (occurrence: US)
  Receive Date: 20161102
  Receipt Date: 20161102
  Transmission Date: 20170207
  Serious: Yes (Life-Threatening, Other)
  Sender: FDA-Public Use
  Company Number: None

PATIENT
  Age: 72 Year
  Sex: Female
  Weight: 67.13 kg

DRUGS (12)
  1. CETIRIZINE [Concomitant]
     Active Substance: CETIRIZINE HYDROCHLORIDE
  2. BENZONATATE. [Concomitant]
     Active Substance: BENZONATATE
  3. BUDESONIDE-FORMOTEROL [Concomitant]
     Active Substance: BUDESONIDE\FORMOTEROL
  4. LOSARTAN. [Concomitant]
     Active Substance: LOSARTAN
  5. MOMETASONE [Concomitant]
     Active Substance: MOMETASONE
  6. RANITIDINE. [Concomitant]
     Active Substance: RANITIDINE
  7. ALBUTEROL. [Concomitant]
     Active Substance: ALBUTEROL
  8. ALBUTEROL-IPRATROPIUM [Concomitant]
  9. CHOLECALCIFEROL (VITAMIN D3) [Concomitant]
  10. HYDRALAZINE [Suspect]
     Active Substance: HYDRALAZINE HYDROCHLORIDE
     Indication: BLOOD PRESSURE MEASUREMENT
     Dosage: HYDRALAZINE - 1 TAB EVERY 8 HOURS - PO - (TOOK 4 DAYS FOR ALL SYMPTOMS TO SUBSIDE)
     Route: 048
     Dates: start: 20161010, end: 20161018
  11. MONTELUKAST [Concomitant]
     Active Substance: MONTELUKAST SODIUM
  12. OMEPRAZOLE. [Concomitant]
     Active Substance: OMEPRAZOLE

REACTIONS (6)
  - Myalgia [None]
  - Vision blurred [None]
  - Fear [None]
  - Palpitations [None]
  - White blood cell count increased [None]
  - Myocardial infarction [None]

NARRATIVE: CASE EVENT DATE: 20161013
